FAERS Safety Report 20211865 (Version 1)
Quarter: 2021Q4

REPORT INFORMATION
  Report Type: Spontaneous
  Country: US (occurrence: None)
  Receive Date: 20211221
  Receipt Date: 20211221
  Transmission Date: 20220303
  Serious: Yes (Hospitalization)
  Sender: FDA-Public Use
  Company Number: None

PATIENT
  Age: 36 Year
  Sex: Female
  Weight: 99.79 kg

DRUGS (1)
  1. RISPERDAL CONSTA [Suspect]
     Active Substance: RISPERIDONE
     Dosage: 1ST DOSE SQ
     Dates: start: 20211122, end: 20211122

REACTIONS (19)
  - Injection site pain [None]
  - Pyrexia [None]
  - Nausea [None]
  - Vomiting [None]
  - Diarrhoea [None]
  - Pain [None]
  - Urinary incontinence [None]
  - Anal incontinence [None]
  - Dysuria [None]
  - Haematochezia [None]
  - Psychotic disorder [None]
  - Nephrolithiasis [None]
  - Sepsis [None]
  - Confusional state [None]
  - Disorientation [None]
  - Nervousness [None]
  - Pollakiuria [None]
  - Micturition urgency [None]
  - Anxiety [None]

NARRATIVE: CASE EVENT DATE: 20211122
